FAERS Safety Report 4526590-6 (Version None)
Quarter: 2004Q4

REPORT INFORMATION
  Report Type: 
  Country: None (occurrence: None)
  Receive Date: 20041210
  Receipt Date: 20041201
  Transmission Date: 20050328
  Serious: Yes (Hospitalization)
  Sender: FDA-Public Use
  Company Number: 2004103050

PATIENT
  Age: 52 Year
  Sex: Female

DRUGS (3)
  1. ALPRAZOLAM [Suspect]
     Indication: DEPRESSION
     Dosage: 0.25 MG, PRN, ORAL
     Route: 048
     Dates: start: 20010701
  2. VENLAFAXINE HCL [Suspect]
     Indication: DEPRESSION
     Dosage: 1 DOSE FORM (DAILY), ORAL
     Route: 048
     Dates: end: 20040906
  3. LEVOTHYROXINE SODIUM [Concomitant]

REACTIONS (7)
  - ARTHROPOD BITE [None]
  - ERYTHEMA [None]
  - LEUKOCYTOCLASTIC VASCULITIS [None]
  - RASH PAPULAR [None]
  - RASH PRURITIC [None]
  - TOXIC SKIN ERUPTION [None]
  - WEGENER'S GRANULOMATOSIS [None]
